FAERS Safety Report 9456456 (Version 1)
Quarter: 2013Q3

REPORT INFORMATION
  Report Type: Spontaneous
  Country: GB (occurrence: GB)
  Receive Date: 20130813
  Receipt Date: 20130813
  Transmission Date: 20140515
  Serious: Yes (Life-Threatening, Hospitalization, Other)
  Sender: FDA-Public Use
  Company Number: GB-TEVA-423531ISR

PATIENT
  Age: 66 Year
  Sex: Male
  Weight: 102 kg

DRUGS (5)
  1. METFORMIN HYDROCHLORIDE [Suspect]
     Indication: TYPE 2 DIABETES MELLITUS
     Dosage: 1500 MILLIGRAM DAILY;
     Route: 048
     Dates: start: 20120611, end: 20130716
  2. VALSARTAN [Concomitant]
     Dates: start: 20130611
  3. OMEGA-3 ACIDS [Concomitant]
     Indication: ARTHRALGIA
     Dosage: 2 GRAM DAILY;
     Dates: start: 2005
  4. GARLIC OIL ESSENTIAL [Concomitant]
     Dosage: 2 GRAM DAILY;
     Dates: start: 2007
  5. MULTIVITAMIN [Concomitant]
     Dosage: 1 DOSAGE FORMS DAILY;
     Dates: start: 2005

REACTIONS (8)
  - Nasal congestion [Not Recovered/Not Resolved]
  - Panic attack [Unknown]
  - Oropharyngeal pain [Not Recovered/Not Resolved]
  - Irregular sleep phase [Unknown]
  - Nasal polyps [Unknown]
  - Rhinorrhoea [Unknown]
  - Poor quality sleep [Unknown]
  - Upper-airway cough syndrome [Unknown]
